FAERS Safety Report 5663327-1 (Version None)
Quarter: 2008Q1

REPORT INFORMATION
  Report Type: 
  Country: None (occurrence: None)
  Receive Date: 20080307
  Receipt Date: 20080221
  Transmission Date: 20080703
  Serious: Yes (Hospitalization)
  Sender: FDA-Public Use
  Company Number: MPS1-1000002

PATIENT
  Age: 20 Month
  Sex: Male
  Weight: 15 kg

DRUGS (1)
  1. ALDURAZYME [Suspect]
     Indication: MUCOPOLYSACCHARIDOSIS I
     Dosage: INTRAVENOUS
     Route: 042
     Dates: start: 20070208

REACTIONS (5)
  - ANAPHYLACTIC REACTION [None]
  - BODY TEMPERATURE INCREASED [None]
  - HEART RATE INCREASED [None]
  - PALLOR [None]
  - TREMOR [None]
